FAERS Safety Report 5427289-4 (Version None)
Quarter: 2007Q3

REPORT INFORMATION
  Report Type: 
  Country: None (occurrence: None)
  Receive Date: 20070828
  Receipt Date: 20070822
  Transmission Date: 20080115
  Serious: Yes (Hospitalization)
  Sender: FDA-Public Use
  Company Number: HQWYE529313AUG07

PATIENT
  Sex: Female

DRUGS (9)
  1. SIROLIMUS [Suspect]
     Indication: PROPHYLAXIS AGAINST TRANSPLANT REJECTION
     Route: 048
     Dates: start: 20061101, end: 20061228
  2. ACIPHEX [Concomitant]
     Dosage: UNKNOWN
     Route: 065
     Dates: start: 20060825
  3. URSODIOL [Concomitant]
     Dosage: UNKNOWN
     Route: 065
     Dates: start: 20060825
  4. VALCYTE [Concomitant]
     Dosage: UNKNOWN
     Route: 065
     Dates: start: 20060825
  5. ASPIRIN [Concomitant]
     Dosage: UNKNOWN
     Route: 065
     Dates: start: 20060825
  6. NORVASC [Concomitant]
     Dosage: UNKNOWN
     Route: 065
     Dates: start: 20060825
  7. MYCOPHENOLATE MOFETIL [Concomitant]
     Indication: PROPHYLAXIS AGAINST TRANSPLANT REJECTION
     Route: 048
     Dates: start: 20060825, end: 20061111
  8. MYCOPHENOLATE MOFETIL [Concomitant]
     Route: 048
     Dates: start: 20061112
  9. BACTRIM DS [Concomitant]
     Dosage: UNKNOWN
     Route: 065
     Dates: start: 20060825

REACTIONS (1)
  - CHOLANGITIS [None]
